FAERS Safety Report 25045427 (Version 1)
Quarter: 2025Q1

REPORT INFORMATION
  Report Type: Spontaneous
  Country: IT (occurrence: IT)
  Receive Date: 20250306
  Receipt Date: 20250306
  Transmission Date: 20250409
  Serious: Yes (Hospitalization)
  Sender: BAYER HEALTHCARE PHARMACEUTICALS INC.
  Company Number: None

PATIENT
  Age: 16 Year
  Sex: Female
  Weight: 54 kg

DRUGS (2)
  1. YAZ [Suspect]
     Active Substance: DROSPIRENONE\ETHINYL ESTRADIOL
     Indication: Acne
     Dosage: 1 DF, QD
     Route: 048
     Dates: start: 202407, end: 20250122
  2. Benzilpenicillina benzatinica [Concomitant]
     Indication: Antibiotic prophylaxis
     Dosage: 1000 MG, QD
     Route: 048
     Dates: start: 201903

REACTIONS (4)
  - Cerebral venous thrombosis [Recovering/Resolving]
  - Headache [Recovering/Resolving]
  - Diplopia [Recovering/Resolving]
  - Cranial nerve disorder [Recovering/Resolving]

NARRATIVE: CASE EVENT DATE: 20250122
